FAERS Safety Report 10598574 (Version 1)
Quarter: 2014Q4

REPORT INFORMATION
  Report Type: Spontaneous
  Country: US (occurrence: None)
  Receive Date: 20141119
  Receipt Date: 20141119
  Transmission Date: 20150529
  Serious: No
  Sender: FDA-Public Use
  Company Number: 1000069826

PATIENT
  Sex: Female

DRUGS (1)
  1. TUDORZA PRESSAIR [Suspect]
     Active Substance: ACLIDINIUM BROMIDE
     Dates: start: 2014

REACTIONS (9)
  - Headache [None]
  - Chest pain [None]
  - Osteoarthritis [None]
  - Weight increased [None]
  - Chest discomfort [None]
  - Nausea [None]
  - Therapeutic response changed [None]
  - Cough [None]
  - Abdominal discomfort [None]

NARRATIVE: CASE EVENT DATE: 2014
